FAERS Safety Report 9322840 (Version 1)
Quarter: 2013Q2

REPORT INFORMATION
  Report Type: Spontaneous
  Country: US (occurrence: US)
  Receive Date: 20130602
  Receipt Date: 20130602
  Transmission Date: 20140414
  Serious: No
  Sender: FDA-Public Use
  Company Number: US-009507513-1305USA005101

PATIENT
  Sex: Female

DRUGS (1)
  1. CELESTONE [Suspect]
     Indication: PLACENTAL TRANSFUSION SYNDROME
     Dosage: 2 OCCASIONS
     Route: 048

REACTIONS (1)
  - Exposure during pregnancy [Unknown]
